FAERS Safety Report 21394991 (Version 1)
Quarter: 2022Q3

REPORT INFORMATION
  Report Type: Spontaneous
  Country: IT (occurrence: IT)
  Receive Date: 20220930
  Receipt Date: 20220930
  Transmission Date: 20221027
  Serious: Yes (Other)
  Sender: FDA-Public Use
  Company Number: IT-JNJFOC-20220955290

PATIENT
  Age: 21 Year
  Sex: Male
  Weight: 55 kg

DRUGS (5)
  1. BEDAQUILINE [Suspect]
     Active Substance: BEDAQUILINE
     Indication: Bone tuberculosis
     Route: 048
  2. BEDAQUILINE [Suspect]
     Active Substance: BEDAQUILINE
     Route: 048
  3. LINEZOLID [Suspect]
     Active Substance: LINEZOLID
     Indication: Bone tuberculosis
     Route: 048
  4. RIFABUTIN [Suspect]
     Active Substance: RIFABUTIN
     Indication: Bone tuberculosis
     Route: 065
  5. AMIKACIN [Suspect]
     Active Substance: AMIKACIN
     Indication: Bone tuberculosis
     Route: 065

REACTIONS (2)
  - Electrocardiogram T wave inversion [Unknown]
  - Off label use [Unknown]
